FAERS Safety Report 9894714 (Version 1)
Quarter: 2014Q1

REPORT INFORMATION
  Report Type: Spontaneous
  Country: IT (occurrence: IT)
  Receive Date: 20140213
  Receipt Date: 20140213
  Transmission Date: 20141002
  Serious: Yes (Hospitalization, Other)
  Sender: FDA-Public Use
  Company Number: IT-PFIZER INC-2014038407

PATIENT
  Age: 71 Year
  Sex: Female

DRUGS (10)
  1. VANCOMYCIN HCL [Suspect]
     Dosage: 500 MG, ALTERNATE DAY
     Route: 042
     Dates: start: 20110803, end: 20110817
  2. LEVOXACIN [Suspect]
     Indication: SEPSIS
     Dosage: UNK
     Route: 042
     Dates: start: 20110811, end: 20110817
  3. ATORVASTATIN [Concomitant]
     Dosage: UNK
  4. ASPIRIN [Concomitant]
     Dosage: UNK
     Dates: start: 20110722, end: 20110817
  5. BISOPROLOL [Concomitant]
     Dosage: UNK
     Dates: start: 20110722, end: 20110817
  6. FRUSEMIDE [Concomitant]
     Dosage: UNK
  7. EUTIROX [Concomitant]
     Dosage: UNK
  8. CLEXANE [Concomitant]
     Dosage: UNK
     Dates: start: 20110724, end: 20110817
  9. DELTACORTENE [Concomitant]
     Dosage: UNK
     Dates: start: 20110722, end: 20110817
  10. CLOPIDOGREL BISULFATE [Concomitant]
     Dosage: UNK
     Dates: start: 20110721, end: 20110817

REACTIONS (2)
  - Leukopenia [Recovered/Resolved]
  - Neutropenia [Recovered/Resolved]
